FAERS Safety Report 4957021-X (Version None)
Quarter: 2006Q1

REPORT INFORMATION
  Report Type: 
  Country: None (occurrence: None)
  Receive Date: 20060329
  Receipt Date: 20060320
  Transmission Date: 20060701
  Serious: Yes (Hospitalization, Other)
  Sender: FDA-Public Use
  Company Number: US-JNJFOC-20060306086

PATIENT
  Sex: Female
  Weight: 41.28 kg

DRUGS (9)
  1. DURAGESIC-100 [Suspect]
     Route: 062
  2. VICODIN ES [Concomitant]
     Route: 048
  3. VICODIN ES [Concomitant]
     Indication: BREAKTHROUGH PAIN
     Dosage: 7.5 MG HYDROCODONE/750 MG ACETAMINOPHEN, 4 IN 24 HOURS AS NEEDED
     Route: 048
  4. FLUOXETINE HCL [Concomitant]
     Route: 048
  5. FLUOXETINE HCL [Concomitant]
     Indication: ANXIETY
     Dosage: 60 MG, 1 IN 24 HOURS, AT BEDTIME
     Route: 048
  6. VERAPAMIL [Concomitant]
     Route: 048
  7. DIGOXIN [Concomitant]
     Route: 048
  8. DIAZEPAM [Concomitant]
     Dosage: 10 MG, TWO IN 24 HOURS, AS NEEDED
     Route: 048
  9. STOOL SOFTENER [Concomitant]
     Route: 048

REACTIONS (4)
  - DIARRHOEA [None]
  - INTESTINAL OBSTRUCTION [None]
  - PNEUMONIA [None]
  - VOMITING [None]
